FAERS Safety Report 22532762 (Version 1)
Quarter: 2023Q2

REPORT INFORMATION
  Report Type: Report from Study
  Country: BR (occurrence: BR)
  Receive Date: 20230607
  Receipt Date: 20230607
  Transmission Date: 20230722
  Serious: Yes (Other)
  Sender: FDA-Public Use
  Company Number: BR-002147023-PHHY2019BR068733

PATIENT
  Age: 75 Year
  Sex: Female

DRUGS (4)
  1. KISQALI [Suspect]
     Active Substance: RIBOCICLIB
     Indication: Breast cancer
     Dosage: 3 DF, (3X200 MG) UNK
     Route: 065
     Dates: start: 20190112
  2. KISQALI [Suspect]
     Active Substance: RIBOCICLIB
     Dosage: UNK
     Route: 065
     Dates: start: 201902
  3. KISQALI [Suspect]
     Active Substance: RIBOCICLIB
     Dosage: 2 DF (2X200MG), UNK
     Route: 065
  4. FASLODEX [Concomitant]
     Active Substance: FULVESTRANT
     Indication: Product used for unknown indication
     Route: 065

REACTIONS (12)
  - Dysentery [Not Recovered/Not Resolved]
  - Pulmonary mass [Unknown]
  - Immunodeficiency [Unknown]
  - Abdominal pain [Recovered/Resolved]
  - Malaise [Recovered/Resolved]
  - Feeling abnormal [Unknown]
  - Helplessness [Unknown]
  - Skin discolouration [Unknown]
  - Diarrhoea [Unknown]
  - Pruritus [Unknown]
  - Pruritus [Recovered/Resolved]
  - Incorrect dosage administered [Unknown]

NARRATIVE: CASE EVENT DATE: 20190112
